FAERS Safety Report 7163771-X (Version None)
Quarter: 2010Q4

REPORT INFORMATION
  Report Type: 
  Country: None (occurrence: None)
  Receive Date: 20101215
  Receipt Date: 20100610
  Transmission Date: 20110411
  Serious: Yes (Other)
  Sender: FDA-Public Use
  Company Number: US-PFIZER INC-2010047629

PATIENT
  Sex: Female
  Weight: 48 kg

DRUGS (9)
  1. LYRICA [Suspect]
     Dosage: 50 MG, 1X/DAY
     Route: 048
     Dates: start: 20050101
  2. LYRICA [Suspect]
     Dosage: 50 MG, 3X/DAY
  3. LYRICA [Suspect]
     Dosage: 250 MG, 1X/DAY
     Dates: start: 20060101
  4. LYRICA [Suspect]
     Dosage: 100MG 3XDAY, 75MG TWICE DAILY
     Route: 048
  5. PHENOBARBITAL [Concomitant]
     Indication: EPILEPSY
     Dosage: 100 MG, 2X/DAY
  6. PHENOBARBITAL [Concomitant]
     Indication: CONVULSION
  7. FIORICET [Concomitant]
  8. DIFLUCAN [Concomitant]
  9. PAXIL [Concomitant]
     Dosage: 100 MG, 2X/DAY
     Route: 048

REACTIONS (5)
  - CHEST PAIN [None]
  - CONVULSION [None]
  - OEDEMA MOUTH [None]
  - OEDEMA PERIPHERAL [None]
  - PETIT MAL EPILEPSY [None]
